FAERS Safety Report 8514205-1 (Version None)
Quarter: 2012Q3

REPORT INFORMATION
  Report Type: 
  Country: None (occurrence: None)
  Receive Date: 20120717
  Receipt Date: 20120711
  Transmission Date: 20120928
  Serious: Yes (Other)
  Sender: FDA-Public Use
  Company Number: US-PFIZER INC-2012166923

PATIENT
  Sex: Female

DRUGS (1)
  1. ARTHROTEC [Suspect]
     Dosage: 50 MG, 2X/DAY
     Route: 048

REACTIONS (3)
  - MENTAL DISORDER [None]
  - IMPAIRED WORK ABILITY [None]
  - MALAISE [None]
